FAERS Safety Report 7280167-0 (Version None)
Quarter: 2011Q1

REPORT INFORMATION
  Report Type: 
  Country: None (occurrence: None)
  Receive Date: 20110208
  Receipt Date: 20110117
  Transmission Date: 20110831
  Serious: Yes (Other)
  Sender: FDA-Public Use
  Company Number: PHHY2010US69839

PATIENT
  Sex: Female
  Weight: 27.2 kg

DRUGS (4)
  1. TRILEPTAL [Suspect]
     Indication: CONVULSION
  2. PHENYTOIN [Concomitant]
     Indication: TONIC CLONIC MOVEMENTS
     Dosage: UNK
     Dates: start: 20100723
  3. KEPPRA [Concomitant]
     Indication: TONIC CLONIC MOVEMENTS
     Dosage: 4 ML, BID
     Dates: start: 20100519, end: 20100723
  4. OXCARBAZEPINE [Suspect]
     Indication: CONVULSION
     Dosage: 5 ML, BID
     Route: 048
     Dates: start: 20100323, end: 20100323

REACTIONS (4)
  - MUSCLE SPASTICITY [None]
  - MUSCLE TIGHTNESS [None]
  - COMPLEX PARTIAL SEIZURES [None]
  - CONDITION AGGRAVATED [None]
